FAERS Safety Report 17008704 (Version 1)
Quarter: 2019Q4

REPORT INFORMATION
  Report Type: Spontaneous
  Country: US (occurrence: US)
  Receive Date: 20191108
  Receipt Date: 20191108
  Transmission Date: 20200122
  Serious: No
  Sender: FDA-Public Use
  Company Number: US-LUPIN PHARMACEUTICALS INC.-2019-02085

PATIENT
  Sex: Female

DRUGS (1)
  1. MY WAY [Suspect]
     Active Substance: LEVONORGESTREL
     Indication: ORAL CONTRACEPTION
     Dosage: 1 DOSAGE FORM, SINGLE (22-MAR-2019 OR 25-MAR-2019)
     Route: 048

REACTIONS (1)
  - Metrorrhagia [Not Recovered/Not Resolved]

NARRATIVE: CASE EVENT DATE: 20190327
